FAERS Safety Report 8578496-3 (Version None)
Quarter: 2012Q3

REPORT INFORMATION
  Report Type: 
  Country: None (occurrence: None)
  Receive Date: 20120808
  Receipt Date: 20120802
  Transmission Date: 20120928
  Serious: Yes (Hospitalization)
  Sender: FDA-Public Use
  Company Number: AT-AMGEN-AUTCT2012023700

PATIENT
  Age: 54 Year
  Sex: Female

DRUGS (15)
  1. METOPROLOL TARTRATE [Concomitant]
     Dosage: 23.75 MG, QD
     Dates: start: 20110101
  2. FELODIPINE [Concomitant]
     Indication: HYPERTENSION
     Dosage: 5 MG, QD
     Dates: start: 20110101
  3. CIKATRIDINA [Concomitant]
     Dosage: UNK UNK, QD
     Dates: start: 20120101
  4. PASPERTIN [Concomitant]
     Indication: NAUSEA
     Dosage: 4 MG, PRN
     Dates: start: 20110113
  5. MAGNONORM-GENERICON [Concomitant]
     Dosage: 365 MG, QD
     Dates: start: 20110113
  6. NOVALGIN [Concomitant]
  7. FEMARA [Concomitant]
  8. SIMVASTATIN [Concomitant]
     Dosage: 20 MG, QD
     Dates: start: 20090601
  9. VOLTAREN [Concomitant]
     Dosage: 50 MG, UNK
     Dates: start: 20120101, end: 20120101
  10. PANTOPRAZOLE SODIUM SESQUIHYDRATE [Concomitant]
     Dosage: 20 MG, QD
     Dates: start: 20100601, end: 20120201
  11. AMOXICILLIN AND CLAVULANATE POTASSIUM [Concomitant]
     Dosage: UNK
     Dates: start: 20120201, end: 20120201
  12. HALSET [Concomitant]
     Indication: OROPHARYNGEAL PAIN
     Dosage: UNK UNK, PRN
     Dates: start: 20120201
  13. DENOSUMAB [Suspect]
     Indication: BREAST CANCER
     Dosage: 60 MG, UNK
     Route: 058
     Dates: start: 20091120
  14. KEFZOL [Concomitant]
     Indication: INFECTION
     Dosage: 2 G, TID
     Dates: start: 20120201, end: 20120201
  15. CAL-D-VITA [Concomitant]

REACTIONS (1)
  - BRONCHITIS [None]
